FAERS Safety Report 20738552 (Version 4)
Quarter: 2023Q4

REPORT INFORMATION
  Report Type: Report from Study
  Country: JP (occurrence: JP)
  Receive Date: 20220422
  Receipt Date: 20231020
  Transmission Date: 20240110
  Serious: Yes (Other)
  Sender: FDA-Public Use
  Company Number: JP-ASTELLAS-2022JP005830

PATIENT
  Age: 47 Year
  Sex: Female
  Weight: 39.6 kg

DRUGS (6)
  1. ENFORTUMAB VEDOTIN [Suspect]
     Active Substance: ENFORTUMAB VEDOTIN
     Indication: Malignant neoplasm of renal pelvis
     Dosage: 60 MG (1.25 MG/KG), UNKNOWN FREQ.
     Route: 041
     Dates: start: 20211207, end: 20220323
  2. CEFACLOR [Concomitant]
     Active Substance: CEFACLOR
     Indication: Pyrexia
     Route: 048
     Dates: start: 20211209, end: 20211215
  3. CROTAMITON [Concomitant]
     Active Substance: CROTAMITON
     Indication: Pruritus
     Dosage: UNK UNK, ONCE DAILY
     Route: 050
     Dates: start: 20211214, end: 20220411
  4. METOCLOPRAMIDE [Concomitant]
     Active Substance: METOCLOPRAMIDE
     Indication: Nausea
     Route: 048
     Dates: start: 20211223, end: 20220216
  5. HEPARINOID [Concomitant]
     Indication: Pruritus
     Dosage: UNK UNK, ONCE DAILY
     Route: 050
     Dates: start: 20211228, end: 20220411
  6. PROCHLORPERAZINE DIMETHANESULFONATE [Concomitant]
     Active Substance: PROCHLORPERAZINE DIMETHANESULFONATE
     Indication: Nausea
     Route: 048
     Dates: start: 20220105, end: 20220203

REACTIONS (13)
  - Hypoalbuminaemia [Not Recovered/Not Resolved]
  - Malignant neoplasm of renal pelvis [Not Recovered/Not Resolved]
  - Pyrexia [Recovered/Resolved]
  - Lymphocyte count decreased [Recovered/Resolved]
  - Pruritus [Recovered/Resolved]
  - White blood cell count decreased [Recovered/Resolved]
  - Nausea [Recovering/Resolving]
  - Alopecia [Not Recovered/Not Resolved]
  - Neutrophil count decreased [Recovered/Resolved]
  - Aspartate aminotransferase increased [Recovered/Resolved]
  - Amylase increased [Recovered/Resolved]
  - Hyponatraemia [Recovered/Resolved]
  - Decreased appetite [Not Recovered/Not Resolved]

NARRATIVE: CASE EVENT DATE: 20211208
